FAERS Safety Report 12840124 (Version 1)
Quarter: 2016Q4

REPORT INFORMATION
  Report Type: Spontaneous
  Country: US (occurrence: US)
  Receive Date: 20161012
  Receipt Date: 20161012
  Transmission Date: 20170207
  Serious: No
  Sender: FDA-Public Use
  Company Number: ALCN2016US006927

PATIENT
  Age: 69 Year
  Sex: Male
  Weight: 88.43 kg

DRUGS (1)
  1. SIMBRINZA [Suspect]
     Active Substance: BRIMONIDINE TARTRATE\BRINZOLAMIDE
     Indication: INTRAOCULAR PRESSURE DECREASED
     Route: 047

REACTIONS (2)
  - Eye pruritus [Unknown]
  - Medication residue present [Unknown]
